FAERS Safety Report 8727201 (Version 3)
Quarter: 2012Q4

REPORT INFORMATION
  Report Type: 
  Country: US (occurrence: US)
  Receive Date: 20120816
  Receipt Date: 20120829
  Transmission Date: 20130627
  Serious: Yes (Other)
  Sender: FDA-Public Use
  Company Number: CHPA2012US018151

PATIENT
  Age: 82 Year
  Sex: Female

DRUGS (2)
  1. VOLTAREN GEL [Suspect]
     Indication: PAIN
     Dosage: A little on hand applied
     Route: 061
  2. CLINDAMYCIN HYDROCHLORIDE [Suspect]
     Indication: ANIMAL BITE
     Dosage: 300 mg, Q8H

REACTIONS (5)
  - Rash pruritic [Unknown]
  - Animal bite [Unknown]
  - Therapeutic response unexpected [Unknown]
  - Drug administered at inappropriate site [Unknown]
  - Wrong technique in drug usage process [Unknown]
